FAERS Safety Report 9158407 (Version 1)
Quarter: 2013Q1

REPORT INFORMATION
  Report Type: Spontaneous
  Country: JP (occurrence: JP)
  Receive Date: 20130312
  Receipt Date: 20130312
  Transmission Date: 20140127
  Serious: Yes (Other)
  Sender: FDA-Public Use
  Company Number: JP-TEVA-390022ISR

PATIENT
  Age: 71 Year
  Sex: Male

DRUGS (4)
  1. CARBOPLATIN [Suspect]
     Indication: NON-SMALL CELL LUNG CANCER STAGE IV
     Route: 065
  2. PACLITAXEL [Suspect]
     Indication: NON-SMALL CELL LUNG CANCER STAGE IV
     Route: 065
  3. MORPHINE [Suspect]
     Indication: METASTATIC PAIN
     Route: 065
  4. ZOLEDRONIC ACID [Concomitant]
     Indication: METASTASES TO BONE
     Route: 065

REACTIONS (5)
  - Portal venous gas [Recovered/Resolved]
  - Constipation [Unknown]
  - Nausea [Unknown]
  - Decreased appetite [Unknown]
  - Decreased activity [Unknown]
